FAERS Safety Report 14299423 (Version 7)
Quarter: 2020Q1

REPORT INFORMATION
  Report Type: Report from Study
  Country: CA (occurrence: CA)
  Receive Date: 20171219
  Receipt Date: 20200318
  Transmission Date: 20200409
  Serious: Yes (Hospitalization, Other)
  Sender: FDA-Public Use
  Company Number: CA-ROCHE-1659599

PATIENT
  Age: 51 Year
  Sex: Male

DRUGS (33)
  1. PLAQUENIL [Concomitant]
     Active Substance: HYDROXYCHLOROQUINE SULFATE
  2. PANTOPRAZOLE [Concomitant]
     Active Substance: PANTOPRAZOLE
  3. RITUXAN [Suspect]
     Active Substance: RITUXIMAB
     Indication: RHEUMATOID ARTHRITIS
     Dosage: HE RECEIVED RITUXIMAB INFUSION ON 31/OCT/2016?PREVIOUS RITUXIMAB INFUSION: 26/FEB/2020.
     Route: 042
     Dates: start: 20151022
  4. ACETAMINOPHEN. [Concomitant]
     Active Substance: ACETAMINOPHEN
     Route: 048
     Dates: start: 20161031
  5. HYDROMORPH CONTIN [Concomitant]
     Active Substance: HYDROMORPHONE
  6. SULFATRIM [Concomitant]
     Active Substance: SULFAMETHOXAZOLE\TRIMETHOPRIM
  7. TERAZOSIN [Concomitant]
     Active Substance: TERAZOSIN HYDROCHLORIDE
  8. ACETAMINOPHEN. [Concomitant]
     Active Substance: ACETAMINOPHEN
     Indication: PREMEDICATION
     Route: 048
     Dates: start: 20151022, end: 20161031
  9. SILVER SULFADIAZENE [Concomitant]
     Active Substance: SILVER SULFADIAZINE
  10. XARELTO [Concomitant]
     Active Substance: RIVAROXABAN
  11. SULFASALAZINE. [Concomitant]
     Active Substance: SULFASALAZINE
  12. BISOPROLOL [Concomitant]
     Active Substance: BISOPROLOL
  13. AMLODIPINE [Concomitant]
     Active Substance: AMLODIPINE BESYLATE
  14. FUROSEMIDE. [Concomitant]
     Active Substance: FUROSEMIDE
  15. PREDNISONE. [Concomitant]
     Active Substance: PREDNISONE
  16. METHYLPREDNISOLONE. [Concomitant]
     Active Substance: METHYLPREDNISOLONE
     Indication: PREMEDICATION
     Route: 042
     Dates: start: 20151022
  17. HYDROMORPHONE [Concomitant]
     Active Substance: HYDROMORPHONE
  18. XARELTO [Concomitant]
     Active Substance: RIVAROXABAN
  19. MYCOPHENOLATE MOFETIL. [Concomitant]
     Active Substance: MYCOPHENOLATE MOFETIL
     Route: 048
  20. CALCIUM [Concomitant]
     Active Substance: CALCIUM
  21. ELIQUIS [Concomitant]
     Active Substance: APIXABAN
  22. DIPHENHYDRAMINE. [Concomitant]
     Active Substance: DIPHENHYDRAMINE
     Indication: PREMEDICATION
     Route: 048
     Dates: start: 20151022
  23. METHOTREXATE. [Concomitant]
     Active Substance: METHOTREXATE
  24. FOLIC ACID. [Concomitant]
     Active Substance: FOLIC ACID
  25. ALMAGEL [ALUMINIUM HYDROXIDE;MAGNESIUM HYDROXIDE] [Concomitant]
     Active Substance: ALUMINUM HYDROXIDE\MAGNESIUM HYDROXIDE
  26. PERINDOPRIL [Concomitant]
     Active Substance: PERINDOPRIL
  27. CYMBALTA [Concomitant]
     Active Substance: DULOXETINE HYDROCHLORIDE
  28. DOMPERIDONE [Concomitant]
     Active Substance: DOMPERIDONE
  29. LORAZEPAM. [Concomitant]
     Active Substance: LORAZEPAM
  30. PERINDOPRIL [Concomitant]
     Active Substance: PERINDOPRIL
  31. RELAXA [MACROGOL 3350] [Concomitant]
  32. SODIUM BICARBONATE. [Concomitant]
     Active Substance: SODIUM BICARBONATE
  33. SPIRONOLACTONE. [Concomitant]
     Active Substance: SPIRONOLACTONE

REACTIONS (27)
  - Pneumonia [Unknown]
  - Renal disorder [Unknown]
  - Blood pressure increased [Unknown]
  - Musculoskeletal stiffness [Unknown]
  - Splinter [Unknown]
  - Back pain [Unknown]
  - Oropharyngeal pain [Recovered/Resolved]
  - Gastroenteritis [Unknown]
  - Rheumatoid arthritis [Recovered/Resolved]
  - Oral herpes [Not Recovered/Not Resolved]
  - Renal impairment [Unknown]
  - Pain in extremity [Not Recovered/Not Resolved]
  - Heart rate decreased [Unknown]
  - Mouth ulceration [Recovering/Resolving]
  - Heart rate decreased [Unknown]
  - Infusion related reaction [Recovered/Resolved]
  - Diarrhoea [Recovered/Resolved]
  - Nausea [Recovered/Resolved]
  - Blood pressure diastolic abnormal [Unknown]
  - Pericarditis [Unknown]
  - Necrotising fasciitis [Recovered/Resolved]
  - Headache [Unknown]
  - Blood uric acid increased [Not Recovered/Not Resolved]
  - Dysphonia [Recovered/Resolved]
  - Oropharyngeal pain [Unknown]
  - Blood pressure systolic abnormal [Unknown]
  - Blood pressure fluctuation [Unknown]

NARRATIVE: CASE EVENT DATE: 20151109
